FAERS Safety Report 17480028 (Version 1)
Quarter: 2020Q1

REPORT INFORMATION
  Report Type: Spontaneous
  Country: US (occurrence: US)
  Receive Date: 20200228
  Receipt Date: 20200228
  Transmission Date: 20200409
  Serious: Yes (Hospitalization)
  Sender: FDA-Public Use
  Company Number: US-VIFOR (INTERNATIONAL) INC.-VIT-2020-03938

PATIENT
  Age: 81 Year
  Sex: Female

DRUGS (22)
  1. LEVOTHYROXIN [Concomitant]
     Active Substance: LEVOTHYROXINE
  2. ASPIRIN. [Concomitant]
     Active Substance: ASPIRIN
  3. PYRIDOXINE [Concomitant]
     Active Substance: PYRIDOXINE
  4. ELIQUIS [Concomitant]
     Active Substance: APIXABAN
  5. VITAMIN B-6 [Concomitant]
     Active Substance: PYRIDOXINE
  6. AMIODARONE [Concomitant]
     Active Substance: AMIODARONE
  7. BENICAR [Concomitant]
     Active Substance: OLMESARTAN MEDOXOMIL
  8. HYDRALAZINE [Concomitant]
     Active Substance: HYDRALAZINE HYDROCHLORIDE
  9. IRON [Concomitant]
     Active Substance: IRON
  10. VELTASSA [Suspect]
     Active Substance: PATIROMER
     Indication: HYPERKALAEMIA
     Route: 048
     Dates: start: 20160309
  11. ATORVASTATIN [Concomitant]
     Active Substance: ATORVASTATIN
  12. FUROSEMIDE. [Concomitant]
     Active Substance: FUROSEMIDE
  13. PANTOPRAZOLE [Concomitant]
     Active Substance: PANTOPRAZOLE
  14. CARVEDILOL. [Concomitant]
     Active Substance: CARVEDILOL
  15. VITAMIN D [Concomitant]
     Active Substance: VITAMIN D NOS
  16. AMLODIPINE [Concomitant]
     Active Substance: AMLODIPINE BESYLATE
  17. NITROGLYCERIN. [Concomitant]
     Active Substance: NITROGLYCERIN
  18. HYDROCO [Concomitant]
  19. OLMESA [Concomitant]
  20. PROCRIT [Concomitant]
     Active Substance: ERYTHROPOIETIN
  21. RISEDRONATE [Concomitant]
     Active Substance: RISEDRONATE SODIUM
  22. VALSART [Concomitant]
     Active Substance: VALSARTAN

REACTIONS (2)
  - Product dose omission [Unknown]
  - Cardiac failure congestive [Unknown]
